FAERS Safety Report 9372063 (Version 1)
Quarter: 2013Q2

REPORT INFORMATION
  Report Type: Report from Study
  Country: US (occurrence: US)
  Receive Date: 20130627
  Receipt Date: 20130627
  Transmission Date: 20140414
  Serious: Yes (Other)
  Sender: FDA-Public Use
  Company Number: US-MYLANLABS-2012S1014003

PATIENT
  Age: 52 Year
  Sex: Male
  Weight: 92.08 kg

DRUGS (23)
  1. CLOZAPINE TABLETS [Suspect]
     Indication: SCHIZOPHRENIA
     Dates: start: 20120404, end: 20120716
  2. CLOZAPINE TABLETS [Suspect]
     Indication: PSYCHOTIC DISORDER
     Dates: start: 20120404, end: 20120716
  3. CLOZAPINE TABLETS [Suspect]
     Indication: DELUSION
     Dates: start: 20120404, end: 20120716
  4. CLOZAPINE TABLETS [Suspect]
     Indication: SCHIZOPHRENIA
     Dates: start: 20120404, end: 20120716
  5. CLOZAPINE TABLETS [Suspect]
     Indication: PSYCHOTIC DISORDER
     Dates: start: 20120404, end: 20120716
  6. CLOZAPINE TABLETS [Suspect]
     Indication: DELUSION
     Dates: start: 20120404, end: 20120716
  7. ATORVASTATIN CALCIUM [Concomitant]
     Indication: HYPERLIPIDAEMIA
     Route: 048
     Dates: start: 20120403
  8. BENZTROPINE [Concomitant]
     Indication: EXTRAPYRAMIDAL DISORDER
     Route: 048
     Dates: start: 20120730
  9. FLUPHENAZINE [Concomitant]
     Route: 048
     Dates: start: 20120620
  10. FLUPHENAZINE DECANOATE [Concomitant]
     Indication: PSYCHOTIC DISORDER
     Route: 048
     Dates: start: 20120322
  11. LISINOPRIL [Concomitant]
     Indication: HYPERTENSION
     Route: 048
     Dates: start: 20120316
  12. VITAMIN [Concomitant]
     Indication: ROUTINE HEALTH MAINTENANCE
     Route: 048
     Dates: start: 20120317
  13. OLANZAPINE [Concomitant]
     Indication: PSYCHOTIC DISORDER
     Route: 048
     Dates: start: 20120716
  14. RANITIDINE [Concomitant]
     Indication: GASTROOESOPHAGEAL REFLUX DISEASE
     Route: 048
     Dates: start: 20120615
  15. OXYBUTYNIN [Concomitant]
     Route: 048
     Dates: start: 20120315
  16. SENNOSIDE [Concomitant]
     Indication: CONSTIPATION
     Route: 048
     Dates: start: 20120315
  17. VALPROIC ACID [Concomitant]
     Indication: MANIA
     Route: 048
     Dates: start: 20120524
  18. VALPROIC ACID [Concomitant]
     Indication: MANIA
     Route: 048
     Dates: start: 20120523
  19. CLONAZEPAM [Concomitant]
     Route: 048
     Dates: start: 20120804
  20. LEVOTHYROXINE [Concomitant]
     Indication: HYPOTHYROIDISM
     Route: 048
     Dates: start: 20120404
  21. ACETAMINOPHEN [Concomitant]
     Indication: PAIN
     Route: 048
     Dates: start: 20120316
  22. MILK OF MAGNESIA [Concomitant]
     Indication: CONSTIPATION
     Dosage: PRN
     Route: 048
     Dates: start: 20120316
  23. MYLANTA [Concomitant]
     Indication: DYSPEPSIA
     Dosage: PRN
     Route: 048
     Dates: start: 20120316

REACTIONS (1)
  - Granulocytopenia [Not Recovered/Not Resolved]
